FAERS Safety Report 9542033 (Version 1)
Quarter: 2013Q3

REPORT INFORMATION
  Report Type: Spontaneous
  Country: US (occurrence: US)
  Receive Date: 20130923
  Receipt Date: 20130923
  Transmission Date: 20140515
  Serious: Yes (Hospitalization)
  Sender: FDA-Public Use
  Company Number: US-JNJFOC-20130910551

PATIENT
  Age: 74 Year
  Sex: Male

DRUGS (5)
  1. XARELTO [Suspect]
     Indication: CEREBROVASCULAR ACCIDENT PROPHYLAXIS
     Route: 048
     Dates: start: 2013, end: 2013
  2. XARELTO [Suspect]
     Indication: ATRIAL FIBRILLATION
     Route: 048
     Dates: start: 2013, end: 2013
  3. LISINOPRIL [Concomitant]
     Route: 065
  4. DIGOXIN [Concomitant]
     Route: 065
  5. LASIX [Concomitant]
     Route: 065

REACTIONS (2)
  - Urinary bladder haemorrhage [Unknown]
  - Transurethral prostatectomy [Unknown]
